FAERS Safety Report 8571190-4 (Version None)
Quarter: 2012Q3

REPORT INFORMATION
  Report Type: 
  Country: None (occurrence: None)
  Receive Date: 20120806
  Receipt Date: 20120731
  Transmission Date: 20120928
  Serious: No
  Sender: FDA-Public Use
  Company Number: US-PFIZER INC-2012186072

PATIENT
  Age: 57 Year
  Sex: Female

DRUGS (19)
  1. DURICEF [Suspect]
     Dosage: UNK
  2. CEFTIN [Suspect]
     Dosage: UNK
  3. MONISTAT [Suspect]
     Dosage: UNK
  4. RELAFEN [Suspect]
     Dosage: UNK
  5. AMBIEN [Suspect]
     Dosage: UNK
  6. CLEOCIN HYDROCHLORIDE [Suspect]
     Dosage: UNK
  7. OXYMETAZOLINE HCL [Suspect]
     Dosage: UNK
  8. GADOLINIUM [Suspect]
     Dosage: UNK
  9. MYCELEX [Suspect]
     Dosage: UNK
  10. EPINEPHRINE [Suspect]
     Dosage: UNK
  11. HEPARIN [Suspect]
     Dosage: UNK
  12. CAFFEINE CITRATE [Suspect]
     Dosage: UNK
  13. COMPAZINE [Suspect]
     Dosage: UNK
  14. INDOCIN [Suspect]
     Dosage: UNK
  15. CECLOR [Suspect]
     Dosage: UNK
  16. ALCOHOL [Suspect]
     Dosage: UNK
  17. CIPROFLOXACIN HCL [Suspect]
     Dosage: UNK
  18. IODINE [Suspect]
     Dosage: UNK
  19. NIZORAL [Suspect]
     Dosage: UNK

REACTIONS (1)
  - DRUG HYPERSENSITIVITY [None]
